FAERS Safety Report 24042456 (Version 1)
Quarter: 2024Q3

REPORT INFORMATION
  Report Type: Spontaneous
  Country: US (occurrence: US)
  Receive Date: 20240702
  Receipt Date: 20240702
  Transmission Date: 20241017
  Serious: No
  Sender: PFIZER
  Company Number: US-PFIZER INC-202400204297

PATIENT
  Age: 68 Year
  Sex: Male

DRUGS (2)
  1. PAXLOVID [Suspect]
     Active Substance: NIRMATRELVIR\RITONAVIR
     Indication: COVID-19 treatment
     Dosage: 300 MG TWICE A DAY
     Dates: start: 20240619, end: 20240624
  2. METHOTREXATE [Concomitant]
     Active Substance: METHOTREXATE
     Dosage: UNK
     Dates: start: 20180402, end: 20240616

REACTIONS (1)
  - Symptom recurrence [Recovering/Resolving]

NARRATIVE: CASE EVENT DATE: 20240627
